FAERS Safety Report 6852429-X (Version None)
Quarter: 2010Q3

REPORT INFORMATION
  Report Type: 
  Country: None (occurrence: None)
  Receive Date: 20100717
  Receipt Date: 20071115
  Transmission Date: 20110219
  Serious: No
  Sender: FDA-Public Use
  Company Number: US-PFIZER INC-2007098149

PATIENT
  Sex: Female
  Weight: 63.5 kg

DRUGS (5)
  1. CHANTIX [Suspect]
     Indication: SMOKING CESSATION THERAPY
     Route: 048
     Dates: start: 20071031
  2. DEPAKOTE [Concomitant]
  3. SYNTHROID [Concomitant]
  4. ALL OTHER THERAPEUTIC PRODUCTS [Concomitant]
  5. CLONIDINE [Concomitant]

REACTIONS (4)
  - ABDOMINAL DISCOMFORT [None]
  - DIZZINESS [None]
  - INFLUENZA [None]
  - VOMITING [None]
